FAERS Safety Report 4997179-X (Version None)
Quarter: 2006Q2

REPORT INFORMATION
  Report Type: 
  Country: None (occurrence: None)
  Receive Date: 20060505
  Receipt Date: 20060505
  Transmission Date: 20061013
  Serious: Yes (Disabling, Other)
  Sender: FDA-Public Use
  Company Number: None

PATIENT
  Age: 41 Year
  Sex: Male
  Weight: 50 kg

DRUGS (1)
  1. HURRICAINE SPRAY  20%  BEUTLICH PHARMACEUTICALS [Suspect]
     Indication: PHARYNGEAL HYPOAESTHESIA
     Dosage: 3-4 SPRAYS     PO
     Route: 048
     Dates: start: 20060203, end: 20060203

REACTIONS (2)
  - METHAEMOGLOBINAEMIA [None]
  - OXYGEN SATURATION DECREASED [None]
